FAERS Safety Report 25949865 (Version 2)
Quarter: 2025Q4

REPORT INFORMATION
  Report Type: Spontaneous
  Country: JP (occurrence: JP)
  Receive Date: 20251022
  Receipt Date: 20251111
  Transmission Date: 20260118
  Serious: Yes (Other)
  Sender: TAIHO ONCOLOGY INC
  Company Number: JP-TAIHOP-2025-011291

PATIENT
  Age: 79 Year
  Sex: Female
  Weight: 44.9 kg

DRUGS (8)
  1. LONSURF [Suspect]
     Active Substance: TIPIRACIL HYDROCHLORIDE\TRIFLURIDINE
     Indication: Colorectal cancer
     Dosage: CURRENT CYCLE 4
     Route: 048
     Dates: start: 20250106, end: 20250427
  2. BEVACIZUMAB BS [Concomitant]
     Indication: Product used for unknown indication
     Dosage: CURRENT CYCLE 4?BEVACIZUMAB BS FOR IV INFUSION 100 MG/4 ML : 135 MG (60 %)
     Route: 042
     Dates: start: 20250106, end: 20250427
  3. LEUCON [Concomitant]
     Indication: Product used for unknown indication
     Dosage: 2 TABLETS X 3/DAY AFTER EVERY MEAL FOR 28 DAYS
     Route: 048
  4. ESOMEPRAZOLE [Concomitant]
     Active Substance: ESOMEPRAZOLE
     Indication: Product used for unknown indication
     Route: 048
  5. PREGABALIN [Concomitant]
     Active Substance: PREGABALIN
     Indication: Product used for unknown indication
     Route: 048
  6. EDOXABAN TOSYLATE [Concomitant]
     Active Substance: EDOXABAN TOSYLATE
     Indication: Product used for unknown indication
     Route: 048
  7. TERAMURO AP [Concomitant]
     Indication: Product used for unknown indication
     Dosage: COMBINATION TABLETS, 1 TABLET FOR 1 PER DAY AFTER BREAKFAST FOR 28 DAYS
     Route: 048
  8. HEPARINOID NICHIIKO [Concomitant]
     Indication: Product used for unknown indication
     Dosage: HEPARINOID OIL-BASED CREAM 0.3 % (NICHIKO) 25%?25 G, ONCE OR TWICE/DAY, TWO TUBES

REACTIONS (5)
  - Renal impairment [Unknown]
  - Neutrophil count decreased [Recovered/Resolved]
  - Platelet count decreased [Recovered/Resolved]
  - Haemoglobin decreased [Recovering/Resolving]
  - White blood cell count decreased [Unknown]

NARRATIVE: CASE EVENT DATE: 20250317
